FAERS Safety Report 9222617 (Version 2)
Quarter: 2013Q2

REPORT INFORMATION
  Report Type: Report from Study
  Country: US (occurrence: US)
  Receive Date: 20130410
  Receipt Date: 20130515
  Transmission Date: 20140414
  Serious: Yes (Other)
  Sender: FDA-Public Use
  Company Number: US-ROCHE-1208903

PATIENT
  Sex: 0

DRUGS (1)
  1. ALTEPLASE [Suspect]
     Indication: THROMBOSIS IN DEVICE
     Dosage: 2 MG OR 4 MG
     Route: 065

REACTIONS (1)
  - Dyspnoea [Unknown]
